FAERS Safety Report 13672400 (Version 1)
Quarter: 2017Q2

REPORT INFORMATION
  Report Type: Spontaneous
  Country: FR (occurrence: FR)
  Receive Date: 20170620
  Receipt Date: 20170620
  Transmission Date: 20170830
  Serious: Yes (Hospitalization)
  Sender: FDA-Public Use
  Company Number: FR-ROCHE-1952273

PATIENT
  Age: 67 Year
  Sex: Male
  Weight: 80 kg

DRUGS (9)
  1. ETOPOSIDE. [Suspect]
     Active Substance: ETOPOSIDE
     Indication: BONE MARROW CONDITIONING REGIMEN
     Dosage: 4 DAYS?200 MG X2/D FROM D-6 TO D-3
     Route: 041
     Dates: start: 20160617, end: 20160620
  2. BICNU [Suspect]
     Active Substance: CARMUSTINE
     Indication: BONE MARROW CONDITIONING REGIMEN
     Dosage: 1 DAY
     Route: 041
     Dates: start: 20160617, end: 20160617
  3. ZYVOXID [Concomitant]
     Active Substance: LINEZOLID
  4. ALKERAN [Suspect]
     Active Substance: MELPHALAN
     Indication: BONE MARROW CONDITIONING REGIMEN
     Dosage: 1 DAY?AT D2
     Route: 041
     Dates: start: 20160621, end: 20160621
  5. MABTHERA [Suspect]
     Active Substance: RITUXIMAB
     Indication: BONE MARROW CONDITIONING REGIMEN
     Dosage: 7 DAYS
     Route: 041
     Dates: start: 20160602, end: 20160608
  6. DEXAMETHASONE. [Concomitant]
     Active Substance: DEXAMETHASONE
  7. ZEVALIN [Suspect]
     Active Substance: IBRITUMOMAB TIUXETAN
     Indication: BONE MARROW CONDITIONING REGIMEN
     Dosage: 1 DAY
     Route: 041
     Dates: start: 20160608, end: 20160608
  8. CYTARABINE SANDOZ [Suspect]
     Active Substance: CYTARABINE
     Indication: BONE MARROW CONDITIONING REGIMEN
     Dosage: 4 DAYS?400 MG X2/D FROM D-6 TO D-3
     Route: 041
     Dates: start: 20160617, end: 20160620
  9. OXALIPLATIN. [Concomitant]
     Active Substance: OXALIPLATIN

REACTIONS (2)
  - Aplasia [Recovered/Resolved]
  - Staphylococcal infection [Recovered/Resolved]

NARRATIVE: CASE EVENT DATE: 20160624
